FAERS Safety Report 6150389-0 (Version None)
Quarter: 2009Q2

REPORT INFORMATION
  Report Type: 
  Country: None (occurrence: None)
  Receive Date: 20090407
  Receipt Date: 20090331
  Transmission Date: 20091009
  Serious: Yes (Other)
  Sender: FDA-Public Use
  Company Number: GXKR2007GB04536

PATIENT
  Age: 27 Year
  Sex: Female

DRUGS (4)
  1. DIAZEPAM [Suspect]
  2. ZUCLOPENTHIXOL (ZUCLOPENTHIXOL) [Suspect]
  3. LITHIUM CARBONATE [Suspect]
  4. PROCYCLIDINE HYDROCHLORIDE 2MG TAB [Suspect]

REACTIONS (1)
  - CONVULSION [None]
